FAERS Safety Report 14482282 (Version 1)
Quarter: 2018Q1

REPORT INFORMATION
  Report Type: Spontaneous
  Country: US (occurrence: US)
  Receive Date: 20180202
  Receipt Date: 20180202
  Transmission Date: 20180509
  Serious: Yes (Hospitalization)
  Sender: FDA-Public Use
  Company Number: None

PATIENT
  Age: 66 Year
  Sex: Male

DRUGS (1)
  1. MATULANE [Suspect]
     Active Substance: PROCARBAZINE HYDROCHLORIDE
     Indication: HODGKIN^S DISEASE
     Dosage: 50 MG 5 CAPS DAILY X 14 ORAL
     Route: 048
     Dates: start: 20180110, end: 20180124

REACTIONS (4)
  - Dizziness [None]
  - Blood pressure abnormal [None]
  - Gait inability [None]
  - Haemoglobin decreased [None]

NARRATIVE: CASE EVENT DATE: 20180125
